FAERS Safety Report 6940156-X (Version None)
Quarter: 2010Q3

REPORT INFORMATION
  Report Type: 
  Country: None (occurrence: None)
  Receive Date: 20100825
  Receipt Date: 20100723
  Transmission Date: 20110219
  Serious: Yes (Hospitalization)
  Sender: FDA-Public Use
  Company Number: JP-ASTRAZENECA-2010SE34204

PATIENT
  Age: 25 Year
  Sex: Female

DRUGS (14)
  1. SEROQUEL [Suspect]
     Route: 048
     Dates: start: 20100607, end: 20100613
  2. SEROQUEL [Suspect]
     Route: 048
     Dates: start: 20100614, end: 20100618
  3. SEROQUEL [Suspect]
     Route: 048
     Dates: start: 20100619, end: 20100627
  4. SEROQUEL [Suspect]
     Route: 048
     Dates: start: 20100628, end: 20100629
  5. SEROQUEL [Suspect]
     Route: 048
     Dates: start: 20100630, end: 20100712
  6. SEROQUEL [Suspect]
     Route: 048
     Dates: start: 20100713, end: 20100717
  7. CYMBALTA [Concomitant]
     Route: 048
     Dates: start: 20100614, end: 20100627
  8. CYMBALTA [Concomitant]
     Route: 048
     Dates: start: 20100628, end: 20100705
  9. CYMBALTA [Concomitant]
     Route: 048
     Dates: start: 20100706, end: 20100717
  10. CELECOXIB [Concomitant]
     Route: 048
  11. MIRTAZAPINE [Concomitant]
     Route: 048
     Dates: start: 20100522, end: 20100617
  12. U PAN [Concomitant]
     Route: 048
     Dates: start: 20100522, end: 20100617
  13. NOXTAL [Concomitant]
     Route: 048
     Dates: start: 20100522, end: 20100613
  14. TASMOLIN [Concomitant]
     Route: 048
     Dates: start: 20100628, end: 20100717

REACTIONS (1)
  - STUPOR [None]
